FAERS Safety Report 17770888 (Version 1)
Quarter: 2020Q2

REPORT INFORMATION
  Report Type: Spontaneous
  Country: DE (occurrence: DE)
  Receive Date: 20200512
  Receipt Date: 20200512
  Transmission Date: 20200714
  Serious: Yes (Hospitalization, Other)
  Sender: FDA-Public Use
  Company Number: DE-PFIZER INC-2020187123

PATIENT
  Age: 83 Year
  Sex: Female
  Weight: 60 kg

DRUGS (6)
  1. TORASEMIDE [Suspect]
     Active Substance: TORSEMIDE
     Dosage: 5 MG, 1X/DAY, (1-0-0-0)
  2. RAMIPRIL. [Suspect]
     Active Substance: RAMIPRIL
     Dosage: 5 MG, 1X/DAY, (1-0-0-0)
  3. ACETYLSALICYLIC ACID [Concomitant]
     Active Substance: ASPIRIN
     Dosage: 100 MG, 1X/DAY, (0-1-0-0)
  4. ATORVASTATIN [Concomitant]
     Active Substance: ATORVASTATIN
     Dosage: 20 MG, 1X/DAY, (0-0-1-0)
  5. EMPAGLIFLOZIN [Concomitant]
     Active Substance: EMPAGLIFLOZIN
     Dosage: 10 MG, 1X/DAY, (1-0-0-0)
  6. METOPROLOL. [Suspect]
     Active Substance: METOPROLOL
     Dosage: 47.5 MG, 1X/DAY, (1-0-0-0)
     Route: 065

REACTIONS (6)
  - Presyncope [Unknown]
  - Fracture [Unknown]
  - Glycosylated haemoglobin increased [Unknown]
  - Chest wall haematoma [Unknown]
  - Periorbital haematoma [Unknown]
  - Fall [Unknown]

NARRATIVE: CASE EVENT DATE: 20190922
